FAERS Safety Report 17831440 (Version 5)
Quarter: 2020Q3

REPORT INFORMATION
  Report Type: Report from Study
  Country: None (occurrence: CO)
  Receive Date: 20200527
  Receipt Date: 20200828
  Transmission Date: 20201103
  Serious: Yes (Hospitalization, Other)
  Sender: FDA-Public Use
  Company Number: CO-ABBVIE-20K-036-3420632-00

PATIENT
  Age: 40 Year
  Sex: Male
  Weight: 90 kg

DRUGS (1)
  1. HUMIRA [Suspect]
     Active Substance: ADALIMUMAB
     Indication: COLITIS ULCERATIVE
     Route: 058
     Dates: start: 20180814, end: 20200222

REACTIONS (8)
  - Decreased appetite [Recovering/Resolving]
  - Anal haemorrhage [Recovering/Resolving]
  - Colitis ulcerative [Not Recovered/Not Resolved]
  - COVID-19 [Recovered/Resolved]
  - Syncope [Recovering/Resolving]
  - Haemorrhoids [Recovering/Resolving]
  - Loss of consciousness [Recovering/Resolving]
  - Mental disorder [Unknown]

NARRATIVE: CASE EVENT DATE: 2019
